FAERS Safety Report 13535161 (Version 2)
Quarter: 2017Q3

REPORT INFORMATION
  Report Type: Spontaneous
  Country: US (occurrence: US)
  Receive Date: 20170511
  Receipt Date: 20170724
  Transmission Date: 20171127
  Serious: Yes (Hospitalization, Other)
  Sender: FDA-Public Use
  Company Number: US-ELI_LILLY_AND_COMPANY-US201705002923

PATIENT
  Age: 57 Year
  Sex: Male
  Weight: 90.7 kg

DRUGS (7)
  1. ANDROGEL [Suspect]
     Active Substance: TESTOSTERONE
     Indication: ANDROGEN DEFICIENCY
     Dosage: UNK UNK, DAILY
     Route: 065
     Dates: start: 201401
  2. TRAMADOL. [Concomitant]
     Active Substance: TRAMADOL
     Indication: PAIN
     Dosage: UNK, UNKNOWN
     Route: 065
     Dates: start: 201406, end: 201408
  3. ANDROGEL [Suspect]
     Active Substance: TESTOSTERONE
     Dosage: UNK UNK, DAILY
     Route: 065
     Dates: start: 201406
  4. RIVAROXABAN [Concomitant]
     Active Substance: RIVAROXABAN
     Indication: ANTICOAGULANT THERAPY
     Dosage: UNK, UNKNOWN
     Route: 065
     Dates: start: 201209
  5. WARFARIN [Concomitant]
     Active Substance: WARFARIN
     Indication: ANTICOAGULANT THERAPY
     Dosage: UNK, UNKNOWN
     Route: 065
     Dates: start: 201209
  6. AXIRON [Suspect]
     Active Substance: TESTOSTERONE
     Indication: ANDROGEN DEFICIENCY
     Dosage: UNK UNK, DAILY
     Route: 065
     Dates: start: 201311, end: 201312
  7. AXIRON [Suspect]
     Active Substance: TESTOSTERONE
     Dosage: UNK UNK, DAILY
     Route: 065
     Dates: start: 201402, end: 201405

REACTIONS (2)
  - Pulmonary embolism [Not Recovered/Not Resolved]
  - Deep vein thrombosis [Unknown]

NARRATIVE: CASE EVENT DATE: 20140605
